FAERS Safety Report 23517207 (Version 2)
Quarter: 2024Q3

REPORT INFORMATION
  Report Type: Other
  Country: CA (occurrence: CA)
  Receive Date: 20240213
  Receipt Date: 20240921
  Transmission Date: 20241016
  Serious: Yes (Hospitalization)
  Sender: GLENMARK
  Company Number: CA-GLENMARK PHARMACEUTICALS-2024GMK088854

PATIENT

DRUGS (2)
  1. EZETIMIBE [Suspect]
     Active Substance: EZETIMIBE
     Indication: Arteriosclerosis
     Dosage: 10 MILLIGRAM
     Route: 058
  2. EZETIMIBE [Suspect]
     Active Substance: EZETIMIBE
     Indication: Arteriosclerosis
     Dosage: 10 MILLIGRAM
     Route: 058

REACTIONS (2)
  - Hospitalisation [Unknown]
  - Product use in unapproved indication [Unknown]
